FAERS Safety Report 9302313 (Version 3)
Quarter: 2013Q2

REPORT INFORMATION
  Report Type: Report from Study
  Country: CA (occurrence: CA)
  Receive Date: 20130522
  Receipt Date: 20130606
  Transmission Date: 20140414
  Serious: Yes (Other)
  Sender: FDA-Public Use
  Company Number: CA-ROCHE-1162690

PATIENT
  Age: 50 Year
  Sex: Female
  Weight: 109.76 kg

DRUGS (6)
  1. ACTEMRA [Suspect]
     Indication: RHEUMATOID ARTHRITIS
     Route: 042
     Dates: start: 20121121, end: 20130510
  2. RAMIPRIL [Concomitant]
  3. FOLIC ACID [Concomitant]
     Route: 065
  4. GLYBURIDE/METFORMIN [Concomitant]
  5. INSULIN [Concomitant]
  6. METFORMIN HYDROCHLORIDE [Concomitant]

REACTIONS (12)
  - Pruritus [Recovered/Resolved]
  - Hypoacusis [Recovered/Resolved]
  - Lymphadenopathy [Recovered/Resolved]
  - Chest pain [Recovered/Resolved]
  - Urticaria [Recovered/Resolved]
  - Anxiety [Recovered/Resolved]
  - Stomatitis [Recovered/Resolved]
  - Constipation [Recovered/Resolved]
  - Fatigue [Recovered/Resolved]
  - Arthralgia [Not Recovered/Not Resolved]
  - Nasopharyngitis [Recovering/Resolving]
  - Influenza [Recovering/Resolving]
